FAERS Safety Report 7325337-8 (Version None)
Quarter: 2011Q1

REPORT INFORMATION
  Report Type: 
  Country: None (occurrence: None)
  Receive Date: 20110302
  Receipt Date: 20110207
  Transmission Date: 20110831
  Serious: Yes (Hospitalization, Other)
  Sender: FDA-Public Use
  Company Number: US-BAYER-201022988NA

PATIENT
  Sex: Female

DRUGS (5)
  1. LEVSIN [Concomitant]
  2. PROTONIX [Concomitant]
     Indication: EPIGASTRIC DISCOMFORT
     Dosage: UNK
     Dates: start: 20091029
  3. CYMBALTA [Concomitant]
  4. FLAGYL [Concomitant]
     Dosage: UNK
     Dates: start: 20090901
  5. YAZ [Suspect]
     Indication: PRODUCT USED FOR UNKNOWN INDICATION
     Route: 048
     Dates: start: 20090601

REACTIONS (4)
  - ABDOMINAL PAIN UPPER [None]
  - CHOLECYSTITIS CHRONIC [None]
  - GALLBLADDER CHOLESTEROLOSIS [None]
  - EPIGASTRIC DISCOMFORT [None]
